FAERS Safety Report 16240723 (Version 3)
Quarter: 2022Q2

REPORT INFORMATION
  Report Type: Spontaneous
  Country: JP (occurrence: JP)
  Receive Date: 20190425
  Receipt Date: 20220630
  Transmission Date: 20220721
  Serious: Yes (Other)
  Sender: FDA-Public Use
  Company Number: JP-PFIZER INC-2019032082

PATIENT
  Age: 50 Year
  Sex: Male
  Weight: 99.7 kg

DRUGS (2)
  1. LORBRENA [Suspect]
     Active Substance: LORLATINIB
     Indication: Non-small cell lung cancer
     Dosage: 100 MG, 1X/DAY
     Route: 048
     Dates: start: 20190118, end: 20190120
  2. LORBRENA [Suspect]
     Active Substance: LORLATINIB
     Dosage: 100 MG, 1X/DAY
     Route: 048
     Dates: start: 20190124, end: 20190219

REACTIONS (3)
  - Thrombophlebitis migrans [Unknown]
  - Disturbance in attention [Recovered/Resolved]
  - Neoplasm progression [Unknown]

NARRATIVE: CASE EVENT DATE: 20190120
